FAERS Safety Report 20925501 (Version 2)
Quarter: 2022Q2

REPORT INFORMATION
  Report Type: Other
  Country: US (occurrence: None)
  Receive Date: 20220607
  Receipt Date: 20220616
  Transmission Date: 20220721
  Serious: Yes (Other)
  Sender: FDA-Public Use
  Company Number: US-ROCHE-3107583

PATIENT
  Age: 45 Year
  Sex: Male

DRUGS (5)
  1. OCREVUS [Suspect]
     Active Substance: OCRELIZUMAB
     Indication: Multiple sclerosis
     Dosage: 300 MG/10ML IV, TAKE 2 VIALS IV AS DIRECTED X 6 MONTHS
     Route: 042
     Dates: start: 201808, end: 202112
  2. ALBUTEROL [Concomitant]
     Active Substance: ALBUTEROL
  3. BACLOFEN [Concomitant]
     Active Substance: BACLOFEN
     Indication: Muscle spasticity
     Route: 048
  4. MYRBETRIQ [Concomitant]
     Active Substance: MIRABEGRON
  5. RITALIN [Concomitant]
     Active Substance: METHYLPHENIDATE HYDROCHLORIDE
     Indication: Asthenia
     Route: 048

REACTIONS (7)
  - Fatigue [Unknown]
  - Urinary incontinence [Unknown]
  - Blood immunoglobulin G decreased [Unknown]
  - Demyelination [Unknown]
  - Apathy [Recovering/Resolving]
  - Asthenia [Recovering/Resolving]
  - Muscle spasticity [Recovering/Resolving]

NARRATIVE: CASE EVENT DATE: 20220101
